FAERS Safety Report 17055738 (Version 2)
Quarter: 2019Q4

REPORT INFORMATION
  Report Type: Spontaneous
  Country: PK (occurrence: PK)
  Receive Date: 20191120
  Receipt Date: 20191129
  Transmission Date: 20200122
  Serious: Yes (Hospitalization, Other)
  Sender: FDA-Public Use
  Company Number: PK-NOVOPROD-696922

PATIENT
  Age: 60 Year
  Sex: Male

DRUGS (2)
  1. MIXTARD 30 PENFILL [Suspect]
     Active Substance: INSULIN HUMAN
     Indication: TYPE 2 DIABETES MELLITUS
     Dosage: 75 IU, QD (40 AND 35 UNITS)
     Route: 058
     Dates: start: 20131001
  2. MIXTARD 30 PENFILL [Suspect]
     Active Substance: INSULIN HUMAN
     Dosage: INCREASED DOSE
     Route: 058
     Dates: end: 20191106

REACTIONS (3)
  - Renal failure [Unknown]
  - Cerebrovascular accident [Not Recovered/Not Resolved]
  - Myocardial infarction [Not Recovered/Not Resolved]

NARRATIVE: CASE EVENT DATE: 20191106
